FAERS Safety Report 6943993-0 (Version None)
Quarter: 2010Q3

REPORT INFORMATION
  Report Type: 
  Country: None (occurrence: None)
  Receive Date: 20100827
  Receipt Date: 20100824
  Transmission Date: 20110219
  Serious: Yes (Hospitalization, Other)
  Sender: FDA-Public Use
  Company Number: US-ASTRAZENECA-2008UW04648

PATIENT
  Age: 43 Year
  Sex: Male
  Weight: 121.6 kg

DRUGS (39)
  1. SEROQUEL [Suspect]
     Indication: ANXIETY
     Dosage: 200 MG TO 400 MG
     Route: 048
     Dates: start: 19990601, end: 20070301
  2. SEROQUEL [Suspect]
     Indication: DEPRESSION
     Dosage: 200 MG TO 400 MG
     Route: 048
     Dates: start: 19990601, end: 20070301
  3. SEROQUEL [Suspect]
     Indication: BIPOLAR DISORDER
     Dosage: 200 MG TO 400 MG
     Route: 048
     Dates: start: 19990601, end: 20070301
  4. SEROQUEL [Suspect]
     Dosage: 200 MG TO 400 MG
     Route: 048
     Dates: start: 20040514, end: 20070601
  5. SEROQUEL [Suspect]
     Dosage: 200 MG TO 400 MG
     Route: 048
     Dates: start: 20040514, end: 20070601
  6. SEROQUEL [Suspect]
     Dosage: 200 MG TO 400 MG
     Route: 048
     Dates: start: 20040514, end: 20070601
  7. SEROQUEL [Suspect]
     Dosage: 100MG-400MG
     Route: 048
     Dates: start: 20040518
  8. SEROQUEL [Suspect]
     Dosage: 100MG-400MG
     Route: 048
     Dates: start: 20040518
  9. SEROQUEL [Suspect]
     Dosage: 100MG-400MG
     Route: 048
     Dates: start: 20040518
  10. LASIX [Concomitant]
     Dosage: 20-40 MG
     Route: 048
  11. GLIPIZIDE [Concomitant]
     Dosage: 10-20 MG DAILY
     Route: 048
  12. PRILOSEC [Concomitant]
     Route: 048
  13. GLUCOPHAGE [Concomitant]
     Route: 048
  14. KLONOPIN [Concomitant]
     Indication: PANIC ATTACK
     Dosage: 1-3 MG
     Route: 048
  15. KLONOPIN [Concomitant]
     Indication: ANXIETY
     Dosage: 1-3 MG
     Route: 048
  16. IMDUR [Concomitant]
     Route: 048
  17. TOPROL-XL [Concomitant]
     Route: 048
  18. PAXIL [Concomitant]
     Dosage: 10-40 MG DAILY
     Route: 048
  19. VALPROIC ACID [Concomitant]
     Route: 048
  20. RISPERDAL [Concomitant]
     Indication: ANXIETY
     Route: 048
  21. RISPERDAL [Concomitant]
     Indication: DEPRESSION
     Route: 048
  22. RISPERDAL [Concomitant]
     Indication: BIPOLAR DISORDER
     Route: 048
  23. RISPERDAL [Concomitant]
     Dates: start: 20060301, end: 20060701
  24. RISPERDAL [Concomitant]
     Dates: start: 20060301, end: 20060701
  25. RISPERDAL [Concomitant]
     Dates: start: 20060301, end: 20060701
  26. DEPAKOTE [Concomitant]
     Dosage: 500-1000 MG
     Route: 048
  27. TRAZODONE HYDROCHLORIDE [Concomitant]
     Route: 048
  28. FOLIC ACID [Concomitant]
     Dosage: 1-3 MG
     Route: 048
  29. ENALAPRIL [Concomitant]
     Route: 048
  30. ALDACTONE [Concomitant]
     Route: 048
  31. HUMALOG [Concomitant]
     Dosage: 12-36 U
     Route: 065
  32. IMIPRAMINE HYDROCHLORIDE [Concomitant]
     Dosage: 25-75 MG
     Route: 048
  33. LANTUS [Concomitant]
     Dosage: 20-40 U
     Route: 065
  34. ACTOS [Concomitant]
     Route: 048
  35. BACLOFEN [Concomitant]
     Route: 048
  36. AMARYL [Concomitant]
     Route: 065
  37. ATENOLOL [Concomitant]
     Route: 048
  38. LISINOPRIL [Concomitant]
     Route: 048
  39. ABILIFY [Concomitant]
     Dates: start: 19980510

REACTIONS (11)
  - AMBLYOPIA [None]
  - ANAEMIA [None]
  - BACK PAIN [None]
  - CHEST PAIN [None]
  - DIABETIC COMPLICATION [None]
  - DIARRHOEA [None]
  - HYPERGLYCAEMIA [None]
  - PAIN [None]
  - SINUS TACHYCARDIA [None]
  - THROMBOCYTOPENIA [None]
  - TYPE 2 DIABETES MELLITUS [None]
